FAERS Safety Report 9212325 (Version 1)
Quarter: 2013Q2

REPORT INFORMATION
  Report Type: Spontaneous
  Country: US (occurrence: US)
  Receive Date: 20130404
  Receipt Date: 20130404
  Transmission Date: 20140414
  Serious: No
  Sender: FDA-Public Use
  Company Number: US-AMGEN-USASP2013019896

PATIENT
  Age: 70 Year
  Sex: Female

DRUGS (3)
  1. ENBREL [Suspect]
     Indication: RHEUMATOID ARTHRITIS
     Dosage: 50 MG, QWK
     Dates: start: 20120404
  2. METHOTREXATE [Concomitant]
     Dosage: 8 TABS PER WEEK
     Dates: start: 201112
  3. PLAQUENIL                          /00072602/ [Concomitant]
     Dosage: 200 MG, BID,  2 PER DAY

REACTIONS (1)
  - Bronchitis [Not Recovered/Not Resolved]
